FAERS Safety Report 20348012 (Version 1)
Quarter: 2022Q1

REPORT INFORMATION
  Report Type: Spontaneous
  Country: US (occurrence: None)
  Receive Date: 20220118
  Receipt Date: 20220118
  Transmission Date: 20220424
  Serious: No
  Sender: FDA-Public Use
  Company Number: 2022A021977

PATIENT
  Sex: Male
  Weight: 81.6 kg

DRUGS (2)
  1. CRESTOR [Suspect]
     Active Substance: ROSUVASTATIN CALCIUM
     Indication: Blood cholesterol increased
     Route: 048
  2. ROSUVASTATIN [Concomitant]
     Active Substance: ROSUVASTATIN
     Indication: Blood cholesterol increased
     Route: 065

REACTIONS (6)
  - Blood cholesterol increased [Unknown]
  - Pain [Unknown]
  - Insomnia [Unknown]
  - Crying [Unknown]
  - Thinking abnormal [Unknown]
  - Dyskinesia [Unknown]
